FAERS Safety Report 11141672 (Version 2)
Quarter: 2015Q3

REPORT INFORMATION
  Report Type: Spontaneous
  Country: MX (occurrence: MX)
  Receive Date: 20150527
  Receipt Date: 20150709
  Transmission Date: 20151125
  Serious: Yes (Death, Hospitalization)
  Sender: FDA-Public Use
  Company Number: MX-AMGEN-MEXSP2014046944

PATIENT
  Age: 57 Year
  Sex: Female

DRUGS (2)
  1. MORFINE [Concomitant]
     Active Substance: MORPHINE
  2. XGEVA [Suspect]
     Active Substance: DENOSUMAB
     Indication: METASTASES TO BONE
     Dosage: 120 MG, QMO
     Route: 058
     Dates: start: 201402

REACTIONS (6)
  - Skin exfoliation [Unknown]
  - Erythema [Unknown]
  - Hospitalisation [Unknown]
  - Disease progression [Fatal]
  - Malignant neoplasm progression [Fatal]
  - Rash [Unknown]

NARRATIVE: CASE EVENT DATE: 201405
